FAERS Safety Report 8280772-9 (Version None)
Quarter: 2012Q2

REPORT INFORMATION
  Report Type: 
  Country: None (occurrence: None)
  Receive Date: 20120412
  Receipt Date: 20120403
  Transmission Date: 20120825
  Serious: Yes (Other)
  Sender: FDA-Public Use
  Company Number: CA-ABBOTT-12P-028-0909555-00

PATIENT
  Age: 25 Year
  Sex: Female

DRUGS (2)
  1. BIAXIN XL [Suspect]
     Indication: PRODUCT USED FOR UNKNOWN INDICATION
  2. GRAVOL TAB [Concomitant]
     Indication: PRODUCT USED FOR UNKNOWN INDICATION

REACTIONS (10)
  - ANXIETY [None]
  - DYSGEUSIA [None]
  - TREMOR [None]
  - FEAR [None]
  - NAUSEA [None]
  - DEPRESSED MOOD [None]
  - SLEEP DISORDER [None]
  - DELIRIUM [None]
  - DYSPNOEA [None]
  - SUICIDAL IDEATION [None]
